FAERS Safety Report 5656120-7 (Version None)
Quarter: 2008Q1

REPORT INFORMATION
  Report Type: 
  Country: None (occurrence: None)
  Receive Date: 20080305
  Receipt Date: 20080221
  Transmission Date: 20080703
  Serious: Yes (Death, Disabling)
  Sender: FDA-Public Use
  Company Number: OSCN-PR-0802S-0082

PATIENT
  Sex: Female

DRUGS (5)
  1. OMNISCAN [Suspect]
     Indication: DRUG USE FOR UNKNOWN INDICATION
  2. GADOPENTETATE DIMEGLUMINE (MAGNEVIST) [Concomitant]
  3. GADOVERSETAMIDE (OPTIMARK) [Concomitant]
  4. PROHANCE [Concomitant]
  5. MULTIHANCE [Concomitant]

REACTIONS (1)
  - NEPHROGENIC SYSTEMIC FIBROSIS [None]
